FAERS Safety Report 21815139 (Version 1)
Quarter: 2023Q1

REPORT INFORMATION
  Report Type: Report from Study
  Country: CA (occurrence: CA)
  Receive Date: 20230104
  Receipt Date: 20230104
  Transmission Date: 20230418
  Serious: Yes (Other)
  Sender: FDA-Public Use
  Company Number: CA-JNJFOC-20221204301

PATIENT
  Sex: Female
  Weight: 58.2 kg

DRUGS (1)
  1. REMICADE [Suspect]
     Active Substance: INFLIXIMAB
     Indication: Crohn^s disease
     Route: 041

REACTIONS (5)
  - Haemorrhage [Unknown]
  - Candida infection [Unknown]
  - Fungal infection [Unknown]
  - Illness [Unknown]
  - Infected naevus [Unknown]
